FAERS Safety Report 7103283-2 (Version None)
Quarter: 2010Q4

REPORT INFORMATION
  Report Type: 
  Country: None (occurrence: None)
  Receive Date: 20101115
  Receipt Date: 20101108
  Transmission Date: 20110411
  Serious: Yes (Hospitalization)
  Sender: FDA-Public Use
  Company Number: FR-BRISTOL-MYERS SQUIBB COMPANY-15243512

PATIENT
  Age: 72 Year
  Sex: Female
  Weight: 64 kg

DRUGS (3)
  1. CETUXIMAB [Suspect]
     Indication: GASTROOESOPHAGEAL CANCER
     Dosage: 8TH INF ON 30JUL2010;5MG/ML.NO OF INFUSIONS:8
     Route: 042
     Dates: start: 20100603, end: 20100730
  2. CISPLATIN [Suspect]
     Indication: GASTROOESOPHAGEAL CANCER
     Dosage: DAY 1 OF CYCLE.
     Route: 042
     Dates: start: 20100603, end: 20100723
  3. XELODA [Suspect]
     Indication: GASTROOESOPHAGEAL CANCER
     Dosage: TABS, ON DAY 1-15; RECENT DOSE ON 05AUG2010.
     Route: 048
     Dates: start: 20100603, end: 20100805

REACTIONS (4)
  - DECREASED APPETITE [None]
  - DEHYDRATION [None]
  - HYPOKALAEMIA [None]
  - NEUTROPENIA [None]
